FAERS Safety Report 23722164 (Version 2)
Quarter: 2024Q2

REPORT INFORMATION
  Report Type: Spontaneous
  Country: JP (occurrence: JP)
  Receive Date: 20240409
  Receipt Date: 20240425
  Transmission Date: 20240716
  Serious: Yes (Other)
  Sender: FDA-Public Use
  Company Number: JP-BAYER-2024A050449

PATIENT
  Age: 9 Decade
  Sex: Female

DRUGS (1)
  1. KERENDIA [Suspect]
     Active Substance: FINERENONE
     Dosage: UNK
     Route: 048

REACTIONS (1)
  - Nausea [Unknown]
